FAERS Safety Report 8127365-1 (Version None)
Quarter: 2012Q1

REPORT INFORMATION
  Report Type: 
  Country: None (occurrence: None)
  Receive Date: 20120210
  Receipt Date: 20120201
  Transmission Date: 20120608
  Serious: Yes (Other)
  Sender: FDA-Public Use
  Company Number: US-BRISTOL-MYERS SQUIBB COMPANY-16379141

PATIENT
  Age: 68 Year
  Sex: Male

DRUGS (1)
  1. ERBITUX [Suspect]

REACTIONS (5)
  - DIARRHOEA [None]
  - BLOOD PRESSURE DECREASED [None]
  - SKIN DISCOLOURATION [None]
  - VOMITING [None]
  - DEHYDRATION [None]
